FAERS Safety Report 8215556-0 (Version None)
Quarter: 2012Q1

REPORT INFORMATION
  Report Type: 
  Country: None (occurrence: None)
  Receive Date: 20120316
  Receipt Date: 20120302
  Transmission Date: 20120608
  Serious: Yes (Hospitalization)
  Sender: FDA-Public Use
  Company Number: FR-ROCHE-1045551

PATIENT
  Age: 1 Hour
  Sex: Female

DRUGS (5)
  1. ROHYPNOL [Suspect]
     Indication: PRODUCT USED FOR UNKNOWN INDICATION
  2. TRIMEPRAZINE TARTRATE [Suspect]
     Indication: PRODUCT USED FOR UNKNOWN INDICATION
     Dosage: SOLUTION
  3. SUBUTEX [Suspect]
     Indication: DRUG DEPENDENCE
     Dates: start: 20100720, end: 20110426
  4. VALIUM [Suspect]
     Indication: PRODUCT USED FOR UNKNOWN INDICATION
  5. ATARAX [Suspect]
     Indication: ANXIETY
     Dosage: TABLET
     Route: 064
     Dates: start: 20100720, end: 20110426

REACTIONS (5)
  - CRYING [None]
  - NEONATAL TACHYPNOEA [None]
  - TREMOR [None]
  - MATERNAL DRUGS AFFECTING FOETUS [None]
  - DRUG WITHDRAWAL SYNDROME NEONATAL [None]
